FAERS Safety Report 21237716 (Version 2)
Quarter: 2022Q4

REPORT INFORMATION
  Report Type: Spontaneous
  Country: GB (occurrence: GB)
  Receive Date: 20220822
  Receipt Date: 20221027
  Transmission Date: 20230113
  Serious: Yes (Other)
  Sender: FDA-Public Use
  Company Number: GB-AMGEN-GBRSP2022141876

PATIENT
  Age: 69 Year
  Sex: Male
  Weight: 70 kg

DRUGS (7)
  1. ARANESP [Suspect]
     Active Substance: DARBEPOETIN ALFA
     Indication: Product used for unknown indication
     Dosage: 40 MICROGRAM, Q2WK
     Route: 058
     Dates: start: 20191125
  2. ARANESP [Suspect]
     Active Substance: DARBEPOETIN ALFA
     Dosage: 60 MICROGRAM, Q2WK
     Route: 058
     Dates: start: 20200211
  3. ARANESP [Suspect]
     Active Substance: DARBEPOETIN ALFA
     Dosage: 80 MICROGRAM, Q2WK
     Route: 058
     Dates: start: 20200429
  4. ARANESP [Suspect]
     Active Substance: DARBEPOETIN ALFA
     Dosage: 100 MICROGRAM, Q2WK
     Route: 058
     Dates: start: 20200930
  5. ARANESP [Suspect]
     Active Substance: DARBEPOETIN ALFA
     Dosage: 130 MICROGRAM, Q2WK
     Route: 058
     Dates: start: 20210126
  6. ARANESP [Suspect]
     Active Substance: DARBEPOETIN ALFA
     Dosage: 130 MICROGRAM, QWK
     Route: 058
     Dates: start: 20220107
  7. ARANESP [Suspect]
     Active Substance: DARBEPOETIN ALFA
     Dosage: 130 MICROGRAM, QWK
     Route: 058
     Dates: end: 20220811

REACTIONS (3)
  - Aplasia pure red cell [Unknown]
  - Drug ineffective [Unknown]
  - Haemoglobin abnormal [Unknown]

NARRATIVE: CASE EVENT DATE: 20220805
